FAERS Safety Report 13039453 (Version 1)
Quarter: 2016Q4

REPORT INFORMATION
  Report Type: Spontaneous
  Country: US (occurrence: US)
  Receive Date: 20161218
  Receipt Date: 20161218
  Transmission Date: 20170207
  Serious: Yes (Life-Threatening, Hospitalization)
  Sender: FDA-Public Use
  Company Number: None

PATIENT
  Age: 16 Year
  Sex: Female
  Weight: 97.52 kg

DRUGS (2)
  1. NEXPLANON [Suspect]
     Active Substance: ETONOGESTREL
     Indication: MENTAL DISORDER
     Dosage: DOSE - 1 ARM-IMPLANT?FREQUENCY - 3 YEAR IMPLANT?ROUTE - GIVEN INTO/UNDER THE SKIN
     Route: 058
     Dates: start: 20150930, end: 20150930
  2. NEXPLANON [Suspect]
     Active Substance: ETONOGESTREL
     Indication: CONTRACEPTION
     Dosage: DOSE - 1 ARM-IMPLANT?FREQUENCY - 3 YEAR IMPLANT?ROUTE - GIVEN INTO/UNDER THE SKIN
     Route: 058
     Dates: start: 20150930, end: 20150930

REACTIONS (5)
  - Mental disorder [None]
  - Depression [None]
  - Stress [None]
  - Abnormal behaviour [None]
  - Suicide attempt [None]

NARRATIVE: CASE EVENT DATE: 20161214
